FAERS Safety Report 7688949-8 (Version None)
Quarter: 2011Q3

REPORT INFORMATION
  Report Type: 
  Country: None (occurrence: None)
  Receive Date: 20110817
  Receipt Date: 20110810
  Transmission Date: 20111222
  Serious: Yes (Death, Hospitalization, Other)
  Sender: FDA-Public Use
  Company Number: PHHY2011US72459

PATIENT

DRUGS (3)
  1. CYCLOSPORINE [Suspect]
     Indication: PROPHYLAXIS AGAINST GRAFT VERSUS HOST DISEASE
     Dosage: UNK UKN, UNK
  2. DACLIZUMAB [Concomitant]
     Indication: GRAFT VERSUS HOST DISEASE
     Dosage: UNK UKN, UNK
  3. CORTICOSTEROIDS [Suspect]
     Indication: PROPHYLAXIS AGAINST GRAFT VERSUS HOST DISEASE
     Dosage: UNK UKN, UNK

REACTIONS (19)
  - NEUTROPHIL COUNT DECREASED [None]
  - PLEURAL EFFUSION [None]
  - ACUTE GRAFT VERSUS HOST DISEASE IN SKIN [None]
  - RESPIRATORY DISORDER [None]
  - COUGH [None]
  - RALES [None]
  - INTERSTITIAL LUNG DISEASE [None]
  - CENTRAL NERVOUS SYSTEM LESION [None]
  - LUNG INFILTRATION [None]
  - CYTOMEGALOVIRUS VIRAEMIA [None]
  - PYREXIA [None]
  - WEIGHT DECREASED [None]
  - LUNG NEOPLASM [None]
  - DRUG LEVEL DECREASED [None]
  - LEGIONELLA INFECTION [None]
  - WHITE BLOOD CELL COUNT DECREASED [None]
  - LYMPHOCYTE COUNT DECREASED [None]
  - LETHARGY [None]
  - MASS [None]
